FAERS Safety Report 4756461-1 (Version None)
Quarter: 2005Q3

REPORT INFORMATION
  Report Type: 
  Country: None (occurrence: None)
  Receive Date: 20050830
  Receipt Date: 20050705
  Transmission Date: 20060218
  Serious: No
  Sender: FDA-Public Use
  Company Number: US-GLAXOSMITHKLINE-A0564950A

PATIENT
  Age: 16 Year
  Sex: Male

DRUGS (1)
  1. WELLBUTRIN XL [Suspect]
     Indication: DEPRESSION
     Dosage: 300MG PER DAY
     Route: 048
     Dates: start: 20050614, end: 20050702

REACTIONS (4)
  - ERYTHEMA [None]
  - JOINT SWELLING [None]
  - PAIN [None]
  - PRURITUS [None]
